FAERS Safety Report 26150411 (Version 1)
Quarter: 2025Q4

REPORT INFORMATION
  Report Type: Spontaneous
  Country: US (occurrence: US)
  Receive Date: 20251212
  Receipt Date: 20251212
  Transmission Date: 20260119
  Serious: No
  Sender: SANOFI AVENTIS
  Company Number: US-SA-2025SA370099

PATIENT
  Sex: Female
  Weight: 87.27 kg

DRUGS (1)
  1. DUPIXENT [Suspect]
     Active Substance: DUPILUMAB
     Dosage: 1 DF, QW
     Route: 058

REACTIONS (4)
  - Dizziness [Unknown]
  - Headache [Unknown]
  - Nasopharyngitis [Unknown]
  - Arthralgia [Unknown]
